FAERS Safety Report 12500314 (Version 2)
Quarter: 2016Q3

REPORT INFORMATION
  Report Type: Spontaneous
  Country: JP (occurrence: JP)
  Receive Date: 20160627
  Receipt Date: 20160711
  Transmission Date: 20161109
  Serious: Yes (Hospitalization)
  Sender: FDA-Public Use
  Company Number: JP-ACTELION-A-CH2016-135179

PATIENT
  Age: 66 Year
  Sex: Female
  Weight: 64 kg

DRUGS (8)
  1. OXYGEN. [Concomitant]
     Active Substance: OXYGEN
  2. TRACLEER [Suspect]
     Active Substance: BOSENTAN
     Indication: PULMONARY HYPERTENSION
     Dosage: 250 MG, QD
     Route: 048
     Dates: start: 20141209, end: 20160509
  3. WARFARIN [Concomitant]
     Active Substance: WARFARIN
  4. CARVEDILOL. [Concomitant]
     Active Substance: CARVEDILOL
  5. TOCOPHEROL [Concomitant]
     Active Substance: TOCOPHEROL
  6. RANITIDINE. [Concomitant]
     Active Substance: RANITIDINE
  7. TADALAFIL [Concomitant]
     Active Substance: TADALAFIL
  8. PITAVASTATIN [Concomitant]
     Active Substance: PITAVASTATIN

REACTIONS (14)
  - Alanine aminotransferase increased [Recovering/Resolving]
  - Feeling hot [Recovering/Resolving]
  - Concomitant disease aggravated [Unknown]
  - Haemorrhage [Unknown]
  - Chromaturia [Unknown]
  - Nasopharyngitis [Recovering/Resolving]
  - Gamma-glutamyltransferase increased [Recovering/Resolving]
  - Right ventricular failure [Unknown]
  - Aspartate aminotransferase increased [Recovering/Resolving]
  - Malaise [Recovering/Resolving]
  - Weight increased [Unknown]
  - International normalised ratio increased [Recovering/Resolving]
  - Autoimmune hepatitis [Unknown]
  - Hepatic function abnormal [Recovering/Resolving]

NARRATIVE: CASE EVENT DATE: 20160415
